FAERS Safety Report 7433359-1 (Version None)
Quarter: 2011Q2

REPORT INFORMATION
  Report Type: 
  Country: None (occurrence: None)
  Receive Date: 20110422
  Receipt Date: 20110418
  Transmission Date: 20111010
  Serious: No
  Sender: FDA-Public Use
  Company Number: US-B.I. PHARMACEUTICALS,INC./RIDGEFIELD-2011-BP-10944BP

PATIENT
  Age: 78 Year
  Sex: Male

DRUGS (10)
  1. NEXIUM [Concomitant]
     Indication: GASTROOESOPHAGEAL REFLUX DISEASE
  2. BENAZEPRIL HYDROCHLORIDE [Concomitant]
     Indication: HYPERTENSION
  3. DILTIAZEM [Concomitant]
     Indication: HYPERTENSION
  4. SAW PALMETTO [Concomitant]
  5. PRADAXA [Suspect]
     Indication: ATRIAL FIBRILLATION
     Dosage: 300 MG
     Route: 048
     Dates: start: 20110301, end: 20110323
  6. ASPIRIN [Concomitant]
  7. IRON [Concomitant]
  8. DOXAZOSIN [Concomitant]
     Indication: HYPERTENSION
  9. PRADAXA [Suspect]
     Dosage: 150 MG
     Route: 048
     Dates: start: 20110414
  10. PROBENECID [Concomitant]
     Indication: GOUT

REACTIONS (1)
  - COAGULOPATHY [None]
